FAERS Safety Report 24725711 (Version 1)
Quarter: 2024Q4

REPORT INFORMATION
  Report Type: Spontaneous
  Country: GB (occurrence: GB)
  Receive Date: 20241212
  Receipt Date: 20241212
  Transmission Date: 20250115
  Serious: Yes (Disabling)
  Sender: RANBAXY
  Company Number: GB-SUN PHARMACEUTICAL INDUSTRIES LTD-2024RR-483882

PATIENT
  Age: 24 Year
  Sex: Male
  Weight: 67 kg

DRUGS (3)
  1. SERTRALINE [Suspect]
     Active Substance: SERTRALINE HYDROCHLORIDE
     Indication: Anxiety disorder
     Dosage: 100MG
     Route: 065
     Dates: start: 20170901, end: 20200401
  2. PROPRANOLOL AND SPIRONOLACTONE [Concomitant]
     Indication: Product used for unknown indication
     Route: 065
  3. PROPRANOLOL AND SPIRONOLACTONE [Concomitant]
     Indication: Anxiety disorder
     Route: 065
     Dates: start: 20210701

REACTIONS (1)
  - Sexual dysfunction [Not Recovered/Not Resolved]

NARRATIVE: CASE EVENT DATE: 20170901
